FAERS Safety Report 5213641-9 (Version None)
Quarter: 2007Q1

REPORT INFORMATION
  Report Type: 
  Country: None (occurrence: None)
  Receive Date: 20070119
  Receipt Date: 20070109
  Transmission Date: 20070707
  Serious: Yes (Other)
  Sender: FDA-Public Use
  Company Number: US-PFIZER INC-2007004223

PATIENT
  Sex: Female
  Weight: 91.2 kg

DRUGS (12)
  1. REVATIO [Suspect]
     Indication: PULMONARY HYPERTENSION
     Route: 048
  2. FUROSEMIDE [Concomitant]
  3. WARFARIN SODIUM [Concomitant]
  4. AVAPRO [Concomitant]
  5. POLYETHYLENE GLYCOL [Concomitant]
  6. ACETAMINOPHEN [Concomitant]
  7. VERAPAMIL [Concomitant]
  8. TRACLEER [Concomitant]
  9. NOVOLOG [Concomitant]
     Indication: DIABETES MELLITUS INSULIN-DEPENDENT
  10. LANTUS [Concomitant]
     Indication: DIABETES MELLITUS INSULIN-DEPENDENT
  11. AMITRIPTYLINE HCL [Concomitant]
  12. LIPITOR [Concomitant]

REACTIONS (2)
  - DRUG INEFFECTIVE [None]
  - PULMONARY HYPERTENSION [None]
